FAERS Safety Report 8898008 (Version 3)
Quarter: 2012Q4

REPORT INFORMATION
  Report Type: 
  Country: JP (occurrence: JP)
  Receive Date: 20121109
  Receipt Date: 20121206
  Transmission Date: 20130627
  Serious: Yes (Life-Threatening, Hospitalization)
  Sender: FDA-Public Use
  Company Number: JP-009507513-1211JPN001813

PATIENT
  Age: 71 Year
  Sex: Female

DRUGS (7)
  1. JANUVIA TABLETS 50MG [Suspect]
     Indication: TYPE 2 DIABETES MELLITUS
     Dosage: 50 mg, qd
     Route: 048
     Dates: start: 201204, end: 201210
  2. AMARYL [Concomitant]
     Indication: TYPE 2 DIABETES MELLITUS
     Dosage: 2 mg, qd
     Route: 048
  3. PLAVIX [Concomitant]
     Indication: MYOCARDIAL INFARCTION
     Dosage: 75 mg, qd
     Route: 048
     Dates: start: 201006
  4. METGLUCO [Concomitant]
     Indication: TYPE 2 DIABETES MELLITUS
     Dosage: 250 mg, tid
     Route: 048
  5. BUFFERIN [Concomitant]
     Indication: MYOCARDIAL INFARCTION
     Dosage: 100 mg, qd
     Route: 048
     Dates: start: 201006
  6. LASIX (FUROSEMIDE) [Concomitant]
     Indication: MYOCARDIAL INFARCTION
     Dosage: 40 mg, qd
     Route: 048
     Dates: start: 201006
  7. ACINON [Concomitant]
     Dosage: 150 mg, qd
     Route: 048
     Dates: start: 201006

REACTIONS (3)
  - Abdominal distension [Unknown]
  - Hepatic cirrhosis [Unknown]
  - Chest discomfort [Unknown]
